FAERS Safety Report 12621378 (Version 1)
Quarter: 2016Q3

REPORT INFORMATION
  Report Type: Spontaneous
  Country: US (occurrence: US)
  Receive Date: 20160804
  Receipt Date: 20160804
  Transmission Date: 20161109
  Serious: No
  Sender: FDA-Public Use
  Company Number: US-PAR PHARMACEUTICAL, INC-2015SCPR014175

PATIENT

DRUGS (3)
  1. DELESTROGEN [Suspect]
     Active Substance: ESTRADIOL VALERATE
     Dosage: 1 ML, MONTHLY
     Route: 030
     Dates: start: 201507
  2. DELESTROGEN [Suspect]
     Active Substance: ESTRADIOL VALERATE
     Dosage: 1 ML, MONTHLY
     Route: 030
  3. DELESTROGEN [Suspect]
     Active Substance: ESTRADIOL VALERATE
     Indication: HORMONE THERAPY
     Dosage: 1 ML, MONTHLY
     Route: 030
     Dates: start: 20150727, end: 20150727

REACTIONS (4)
  - Drug dispensing error [Unknown]
  - Irritability [Not Recovered/Not Resolved]
  - Hot flush [Not Recovered/Not Resolved]
  - Expired product administered [Unknown]

NARRATIVE: CASE EVENT DATE: 20150720
